FAERS Safety Report 17196892 (Version 3)
Quarter: 2020Q1

REPORT INFORMATION
  Report Type: Report from Study
  Country: US (occurrence: US)
  Receive Date: 20191224
  Receipt Date: 20200303
  Transmission Date: 20200409
  Serious: Yes (Other)
  Sender: FDA-Public Use
  Company Number: US-AMGEN-USASL2019212906

PATIENT
  Age: 66 Year
  Sex: Male

DRUGS (1)
  1. ENBREL [Suspect]
     Active Substance: ETANERCEPT
     Indication: RHEUMATOID ARTHRITIS
     Dosage: 50 MILLIGRAM, QWK
     Route: 065

REACTIONS (7)
  - Cystitis [Unknown]
  - Prostate infection [Unknown]
  - Urinary tract infection [Unknown]
  - Anaemia [Unknown]
  - Haematoma [Unknown]
  - Oral surgery [Unknown]
  - Implant site vesicles [Unknown]
